FAERS Safety Report 8387266-0 (Version None)
Quarter: 2012Q2

REPORT INFORMATION
  Report Type: 
  Country: None (occurrence: None)
  Receive Date: 20120525
  Receipt Date: 20120511
  Transmission Date: 20120825
  Serious: Yes (Other)
  Sender: FDA-Public Use
  Company Number: ES-ROCHE-1068732

PATIENT
  Age: 45 Year
  Sex: Female

DRUGS (7)
  1. DEMADEX [Concomitant]
  2. NITROGLYCERIN [Concomitant]
  3. MIRCERA [Suspect]
     Indication: GLOMERULONEPHROPATHY
     Dates: start: 20110621
  4. ALLOPURINOL [Concomitant]
  5. HYDRAPRES [Concomitant]
  6. RITONAVIR [Suspect]
     Indication: PRODUCT USED FOR UNKNOWN INDICATION
  7. PREZISTA [Concomitant]

REACTIONS (3)
  - ACUTE PULMONARY OEDEMA [None]
  - HYPERTENSIVE CRISIS [None]
  - LEFT VENTRICULAR FAILURE [None]
